FAERS Safety Report 14216849 (Version 2)
Quarter: 2017Q4

REPORT INFORMATION
  Report Type: Spontaneous
  Country: NL (occurrence: NL)
  Receive Date: 20171122
  Receipt Date: 20171128
  Transmission Date: 20180321
  Serious: No
  Sender: FDA-Public Use
  Company Number: NL-009507513-1711NLD005582

PATIENT
  Sex: Female

DRUGS (8)
  1. INEGY [Suspect]
     Active Substance: EZETIMIBE\SIMVASTATIN
     Dosage: 10/40 MG, UNK
     Route: 048
     Dates: start: 20171113
  2. JANUVIA [Suspect]
     Active Substance: SITAGLIPTIN PHOSPHATE
     Dosage: TABLETS
     Route: 048
  3. VALSARTAN. [Concomitant]
     Active Substance: VALSARTAN
     Dosage: UNK
  4. METFORMIN [Concomitant]
     Active Substance: METFORMIN HYDROCHLORIDE
     Dosage: UNK
  5. GLICLAZIDE [Concomitant]
     Active Substance: GLICLAZIDE
     Dosage: UNK
  6. SIMVASTATIN. [Suspect]
     Active Substance: SIMVASTATIN
     Route: 048
  7. BISOPROLOL [Concomitant]
     Active Substance: BISOPROLOL
  8. MONO-CEDOCARD [Concomitant]
     Dosage: UNK

REACTIONS (7)
  - Diarrhoea [Not Recovered/Not Resolved]
  - Product availability issue [Unknown]
  - Blood pressure diastolic increased [Recovered/Resolved]
  - Hypertension [Not Recovered/Not Resolved]
  - Myalgia [Recovered/Resolved]
  - Blood pressure systolic increased [Recovered/Resolved]
  - Intestinal polyp [Unknown]

NARRATIVE: CASE EVENT DATE: 2014
